FAERS Safety Report 25398620 (Version 2)
Quarter: 2025Q2

REPORT INFORMATION
  Report Type: Spontaneous
  Country: BG (occurrence: BG)
  Receive Date: 20250604
  Receipt Date: 20250610
  Transmission Date: 20250717
  Serious: Yes (Hospitalization)
  Sender: ABBVIE
  Company Number: BG-IPSEN Group, Research and Development-2025-12516

PATIENT
  Age: 71 Year
  Sex: Female

DRUGS (1)
  1. BOTOX [Suspect]
     Active Substance: ONABOTULINUMTOXINA
     Indication: Skin cosmetic procedure
     Route: 065

REACTIONS (9)
  - Mastication disorder [Unknown]
  - Myasthenic syndrome [Unknown]
  - Muscular weakness [Unknown]
  - Eyelid ptosis [Unknown]
  - Diplopia [Unknown]
  - Asthenia [Unknown]
  - Dysphagia [Unknown]
  - Dysphonia [Unknown]
  - Dysarthria [Unknown]
